FAERS Safety Report 16707308 (Version 9)
Quarter: 2022Q2

REPORT INFORMATION
  Report Type: Report from Study
  Country: US (occurrence: US)
  Receive Date: 20190815
  Receipt Date: 20220605
  Transmission Date: 20220721
  Serious: Yes (Hospitalization)
  Sender: FDA-Public Use
  Company Number: US-ABBVIE-19P-163-2889082-00

PATIENT
  Age: 13 Year
  Sex: Female

DRUGS (30)
  1. HUMIRA [Suspect]
     Active Substance: ADALIMUMAB
     Indication: Crohn^s disease
     Route: 058
     Dates: start: 20160210, end: 20160424
  2. HUMIRA [Suspect]
     Active Substance: ADALIMUMAB
     Route: 058
     Dates: start: 20160425, end: 20160720
  3. HUMIRA [Suspect]
     Active Substance: ADALIMUMAB
     Route: 058
     Dates: start: 20160720, end: 20180122
  4. AZATHIOPRINE [Suspect]
     Active Substance: AZATHIOPRINE
     Indication: Crohn^s disease
     Route: 048
     Dates: start: 20140113, end: 20160424
  5. AZATHIOPRINE [Suspect]
     Active Substance: AZATHIOPRINE
     Route: 048
     Dates: start: 20160425, end: 20180220
  6. AZATHIOPRINE [Suspect]
     Active Substance: AZATHIOPRINE
     Route: 048
     Dates: start: 20180221, end: 20180406
  7. AZATHIOPRINE [Suspect]
     Active Substance: AZATHIOPRINE
     Route: 048
     Dates: start: 20180406, end: 20180409
  8. AZATHIOPRINE [Suspect]
     Active Substance: AZATHIOPRINE
     Route: 048
     Dates: start: 20180409, end: 20190409
  9. ROWASA [Concomitant]
     Active Substance: MESALAMINE
     Indication: Crohn^s disease
     Route: 054
     Dates: start: 20150810, end: 20150824
  10. ROWASA [Concomitant]
     Active Substance: MESALAMINE
     Route: 054
     Dates: start: 20160926
  11. HYDROCORTISONE [Concomitant]
     Active Substance: HYDROCORTISONE
     Indication: Crohn^s disease
     Route: 054
     Dates: start: 201409, end: 201409
  12. HYDROCORTISONE [Concomitant]
     Active Substance: HYDROCORTISONE
     Indication: Eczema
     Route: 061
     Dates: start: 20170824
  13. MESALAMINE [Concomitant]
     Active Substance: MESALAMINE
     Indication: Crohn^s disease
     Route: 048
     Dates: start: 20131105
  14. OMEPRAZOLE [Concomitant]
     Active Substance: OMEPRAZOLE
     Indication: Crohn^s disease
     Route: 048
     Dates: start: 2014
  15. VITAMIN D3 [Concomitant]
     Active Substance: CHOLECALCIFEROL
     Indication: Vitamin supplementation
     Route: 048
     Dates: start: 2014
  16. FERROUS SULFATE [Concomitant]
     Active Substance: FERROUS SULFATE
     Indication: Mineral supplementation
     Route: 048
     Dates: start: 2014
  17. FOLIC ACID [Concomitant]
     Active Substance: FOLIC ACID
     Indication: Vitamin supplementation
     Route: 048
     Dates: start: 2014
  18. VITAMINS [Concomitant]
     Active Substance: VITAMINS
     Indication: Vitamin supplementation
     Route: 048
     Dates: start: 2013
  19. ZINC SULFATE [Concomitant]
     Active Substance: ZINC SULFATE
     Indication: Mineral supplementation
     Route: 048
     Dates: start: 2014
  20. MIRALAX [Concomitant]
     Active Substance: POLYETHYLENE GLYCOL 3350
     Indication: Constipation
     Dosage: DOSE: 2 CAPFULLS
     Route: 048
     Dates: start: 201702
  21. ONDANSETRON [Concomitant]
     Active Substance: ONDANSETRON
     Indication: Nausea
     Dosage: FREQUENCY: PRN
     Route: 048
     Dates: start: 20180221
  22. ASCORBIC ACID [Concomitant]
     Active Substance: ASCORBIC ACID
     Indication: Vitamin supplementation
     Route: 048
     Dates: start: 20190330
  23. TACROLIMUS [Concomitant]
     Active Substance: TACROLIMUS
     Indication: Anal erythema
     Route: 061
     Dates: start: 20180419
  24. TACROLIMUS [Concomitant]
     Active Substance: TACROLIMUS
     Indication: Anorectal swelling
  25. TEMOVATE [Concomitant]
     Active Substance: CLOBETASOL PROPIONATE
     Indication: Anal erythema
     Route: 061
     Dates: start: 20190405
  26. TEMOVATE [Concomitant]
     Active Substance: CLOBETASOL PROPIONATE
     Indication: Anorectal swelling
  27. IRON [Concomitant]
     Active Substance: IRON
     Indication: Blood iron decreased
     Route: 042
     Dates: start: 20190412, end: 20190412
  28. IRON [Concomitant]
     Active Substance: IRON
     Route: 042
     Dates: start: 20190413, end: 20190413
  29. IRON [Concomitant]
     Active Substance: IRON
     Route: 048
     Dates: start: 20190414
  30. TOFACITINIB [Concomitant]
     Active Substance: TOFACITINIB
     Indication: Crohn^s disease
     Route: 048
     Dates: start: 20190414

REACTIONS (1)
  - Colitis [Recovered/Resolved]

NARRATIVE: CASE EVENT DATE: 20190812
